FAERS Safety Report 4366340-X (Version None)
Quarter: 2004Q2

REPORT INFORMATION
  Report Type: 
  Country: None (occurrence: None)
  Receive Date: 20040527
  Receipt Date: 20031003
  Transmission Date: 20050107
  Serious: No
  Sender: FDA-Public Use
  Company Number: US-GLAXOSMITHKLINE-A0428719A

PATIENT

DRUGS (2)
  1. ALBUTEROL [Suspect]
     Indication: BRONCHOSPASM
     Route: 055
  2. SALMETEROL XINAFOATE [Suspect]
     Route: 055

REACTIONS (2)
  - ANXIETY [None]
  - HEART RATE INCREASED [None]
